FAERS Safety Report 7070976-5 (Version None)
Quarter: 2010Q4

REPORT INFORMATION
  Report Type: 
  Country: None (occurrence: None)
  Receive Date: 20101029
  Receipt Date: 20101021
  Transmission Date: 20110411
  Serious: Yes (Other)
  Sender: FDA-Public Use
  Company Number: GB-JNJFOC-20100306849

PATIENT
  Age: 48 Year
  Sex: Female

DRUGS (7)
  1. RISPERIDONE [Suspect]
     Indication: PSYCHOTIC DISORDER
     Route: 065
  2. RISPERIDONE [Suspect]
     Dosage: TITRATED TO 6 MG
     Route: 065
  3. RISPERIDONE [Suspect]
     Route: 065
  4. RISPERIDONE [Suspect]
     Indication: SCHIZOPHRENIA, PARANOID TYPE
     Route: 065
  5. RISPERIDONE [Suspect]
     Dosage: TITRATED TO 6 MG
     Route: 065
  6. RISPERIDONE [Suspect]
     Route: 065
  7. LORAZEPAM [Concomitant]
     Indication: PSYCHOTIC DISORDER
     Dosage: AS NECESSARY
     Route: 065

REACTIONS (2)
  - DYSPHEMIA [None]
  - EXTRAPYRAMIDAL DISORDER [None]
